FAERS Safety Report 7686355-3 (Version None)
Quarter: 2011Q3

REPORT INFORMATION
  Report Type: 
  Country: None (occurrence: None)
  Receive Date: 20110816
  Receipt Date: 20110624
  Transmission Date: 20111222
  Serious: Yes (Other)
  Sender: FDA-Public Use
  Company Number: JP-GLAXOSMITHKLINE-B0729050A

PATIENT
  Age: 87 Year
  Sex: Female

DRUGS (11)
  1. UNKNOWN [Concomitant]
     Route: 048
  2. CARVEDILOL [Concomitant]
     Route: 048
  3. WARFARIN SODIUM [Concomitant]
     Route: 048
  4. VALTREX [Suspect]
     Indication: HERPES ZOSTER
     Dosage: 6IUAX PER DAY
     Route: 048
  5. AMARYL [Concomitant]
     Route: 048
  6. RANITIDINE [Concomitant]
     Route: 048
  7. DIOVAN [Concomitant]
     Route: 048
  8. ARICEPT [Concomitant]
     Route: 048
  9. GRAMALIL [Concomitant]
     Route: 048
  10. LEVOTHYROXINE SODIUM [Concomitant]
     Route: 048
  11. ACETAMINOPHEN [Concomitant]

REACTIONS (3)
  - HYPOAESTHESIA [None]
  - RENAL FAILURE ACUTE [None]
  - DIZZINESS [None]
